FAERS Safety Report 5481851-1 (Version None)
Quarter: 2007Q4

REPORT INFORMATION
  Report Type: 
  Country: None (occurrence: None)
  Receive Date: 20071010
  Receipt Date: 20070621
  Transmission Date: 20080405
  Serious: No
  Sender: FDA-Public Use
  Company Number: US-BOEHRINGER INGELHEIM PHARMACEUTICALS, INC.-2007-BP-12539BP

PATIENT
  Age: 53 Year
  Sex: Female

DRUGS (5)
  1. AGGRENOX [Suspect]
     Indication: CEREBROVASCULAR ACCIDENT
     Route: 048
     Dates: start: 20070521, end: 20070522
  2. PLAVIX [Concomitant]
  3. LEVOTHYROXINE SODIUM [Concomitant]
  4. CRESTOR [Concomitant]
  5. CLARITIN [Concomitant]

REACTIONS (1)
  - TENSION HEADACHE [None]
